APPROVED DRUG PRODUCT: OMNIPAQUE 140
Active Ingredient: IOHEXOL
Strength: 30.2%
Dosage Form/Route: INJECTABLE;INJECTION
Application: N018956 | Product #005
Applicant: GE HEALTHCARE
Approved: Nov 30, 1988 | RLD: Yes | RS: Yes | Type: RX